FAERS Safety Report 7218623-3 (Version None)
Quarter: 2011Q1

REPORT INFORMATION
  Report Type: 
  Country: None (occurrence: None)
  Receive Date: 20110110
  Receipt Date: 20101231
  Transmission Date: 20110831
  Serious: Yes (Death)
  Sender: FDA-Public Use
  Company Number: US-PFIZER INC-2011000383

PATIENT
  Age: 76 Year
  Sex: Female

DRUGS (8)
  1. METHADONE [Suspect]
     Route: 048
  2. LEVOTHYROXINE [Suspect]
     Route: 048
  3. PANTOPRAZOLE [Suspect]
     Route: 048
  4. SIMVASTATIN [Suspect]
     Route: 048
  5. AMPHETAMINE SULFATE [Suspect]
     Route: 048
  6. ACETAMINOPHEN AND HYDROCODONE BITARTRATE [Suspect]
     Route: 048
  7. FUROSEMIDE [Suspect]
     Route: 048
  8. ALPRAZOLAM [Suspect]
     Route: 048

REACTIONS (1)
  - COMPLETED SUICIDE [None]
